FAERS Safety Report 15552779 (Version 1)
Quarter: 2018Q4

REPORT INFORMATION
  Report Type: Spontaneous
  Country: US (occurrence: US)
  Receive Date: 20181025
  Receipt Date: 20181025
  Transmission Date: 20190205
  Serious: No
  Sender: FDA-Public Use
  Company Number: US-BAUSCH-BL-2018-017541

PATIENT
  Age: 65 Year
  Sex: Female
  Weight: 61.29 kg

DRUGS (2)
  1. LOTEMAX [Suspect]
     Active Substance: LOTEPREDNOL ETABONATE
     Indication: SUPERFICIAL INJURY OF EYE
     Dosage: 1 DROP INTO THE RIGHT EYE
     Route: 047
     Dates: start: 20180618, end: 20180618
  2. LOTEMAX [Suspect]
     Active Substance: LOTEPREDNOL ETABONATE
     Indication: OFF LABEL USE

REACTIONS (6)
  - Ocular hyperaemia [Recovered/Resolved]
  - Lacrimation increased [Recovered/Resolved]
  - Eye pain [Recovered/Resolved]
  - Eye irritation [Recovered/Resolved]
  - Off label use [Recovered/Resolved]
  - Rhinorrhoea [Recovered/Resolved]

NARRATIVE: CASE EVENT DATE: 20180618
